FAERS Safety Report 9289476 (Version 1)
Quarter: 2013Q2

REPORT INFORMATION
  Report Type: Spontaneous
  Country: AR (occurrence: AR)
  Receive Date: 20130514
  Receipt Date: 20130514
  Transmission Date: 20140414
  Serious: Yes (Hospitalization)
  Sender: FDA-Public Use
  Company Number: PHHY2013AR029101

PATIENT
  Age: 69 Year
  Sex: Male

DRUGS (2)
  1. XOLAIR [Suspect]
     Indication: ASTHMA
     Dosage: 4,MONTHLY FROM MORE THAN A YEAR AGO
     Route: 058
  2. DIOVAN [Suspect]
     Indication: BLOOD PRESSURE
     Dosage: 320 MG, UNK
     Route: 048

REACTIONS (1)
  - Pneumonia [Recovered/Resolved]
